FAERS Safety Report 9742645 (Version 1)
Quarter: 2013Q4

REPORT INFORMATION
  Report Type: Spontaneous
  Country: US (occurrence: US)
  Receive Date: 20131210
  Receipt Date: 20131210
  Transmission Date: 20140711
  Serious: No
  Sender: FDA-Public Use
  Company Number: US-GILEAD-2009-0025264

PATIENT
  Sex: Female
  Weight: 46.27 kg

DRUGS (15)
  1. LETAIRIS [Suspect]
     Indication: PULMONARY ARTERIAL HYPERTENSION
     Route: 048
     Dates: start: 20080121
  2. GLEEVEC [Concomitant]
  3. LIPITOR [Concomitant]
  4. BONIVA [Concomitant]
  5. ACIPHEX [Concomitant]
  6. CALCITRIOL [Concomitant]
  7. POTASSIUM CHLORIDE [Concomitant]
  8. TRENTAL [Concomitant]
  9. FOLIC ACID [Concomitant]
  10. HYDROCHLOROTHIAZIDE [Concomitant]
  11. CIPRO [Concomitant]
  12. DIPHENHYDRAMINE [Concomitant]
  13. MULTIVITAMIN [Concomitant]
  14. CHROMAGEN [Concomitant]
  15. MENTAX [Concomitant]

REACTIONS (1)
  - Liver function test abnormal [Unknown]
